FAERS Safety Report 18762812 (Version 2)
Quarter: 2021Q1

REPORT INFORMATION
  Report Type: Spontaneous
  Country: CN (occurrence: CN)
  Receive Date: 20210120
  Receipt Date: 20210215
  Transmission Date: 20210419
  Serious: Yes (Life-Threatening, Hospitalization, Other)
  Sender: FDA-Public Use
  Company Number: CN-LUPIN PHARMACEUTICALS INC.-2021-00337

PATIENT
  Age: 22 Year
  Sex: Female

DRUGS (2)
  1. RIVANOL [Suspect]
     Active Substance: ETHACRIDINE LACTATE
     Indication: LABOUR INDUCTION
     Dosage: UNK
     Route: 065
  2. MISOPROSTOL. [Suspect]
     Active Substance: MISOPROSTOL
     Indication: LABOUR INDUCTION
     Dosage: UNK
     Route: 065

REACTIONS (3)
  - Shock haemorrhagic [Recovered/Resolved]
  - Uterine rupture [Recovered/Resolved]
  - Exposure during pregnancy [Unknown]
